FAERS Safety Report 7374875-0 (Version None)
Quarter: 2011Q1

REPORT INFORMATION
  Report Type: 
  Country: None (occurrence: None)
  Receive Date: 20110325
  Receipt Date: 20110315
  Transmission Date: 20110831
  Serious: Yes (Other)
  Sender: FDA-Public Use
  Company Number: US-JNJFOC-20100104018

PATIENT
  Sex: Male
  Weight: 81.8 kg

DRUGS (7)
  1. METHOTREXATE [Concomitant]
     Route: 048
  2. METHOTREXATE [Concomitant]
     Route: 048
  3. VITAMIN D [Concomitant]
     Route: 048
  4. GOLIMUMAB [Suspect]
     Route: 058
  5. GOLIMUMAB [Suspect]
     Route: 058
  6. GOLIMUMAB [Suspect]
     Indication: PSORIATIC ARTHROPATHY
     Route: 058
  7. FOLIC ACID [Concomitant]
     Route: 048

REACTIONS (1)
  - COLON CANCER METASTATIC [None]
